FAERS Safety Report 16781522 (Version 1)
Quarter: 2019Q3

REPORT INFORMATION
  Report Type: Spontaneous
  Country: JP (occurrence: JP)
  Receive Date: 20190906
  Receipt Date: 20190906
  Transmission Date: 20191005
  Serious: Yes (Other)
  Sender: FDA-Public Use
  Company Number: JP-JNJFOC-20190814788

PATIENT
  Age: 7 Decade
  Sex: Female

DRUGS (2)
  1. TREMFYA [Suspect]
     Active Substance: GUSELKUMAB
     Indication: PUSTULOTIC ARTHRO-OSTEITIS
     Route: 058
     Dates: start: 20190214, end: 2019
  2. REMICADE [Concomitant]
     Active Substance: INFLIXIMAB
     Indication: PUSTULOTIC ARTHRO-OSTEITIS
     Dosage: INFLIXIMAB(GENETICAL RECOMBINATION)
     Route: 065

REACTIONS (3)
  - Otitis media acute [Recovered/Resolved]
  - Off label use [Unknown]
  - Product use in unapproved indication [Unknown]

NARRATIVE: CASE EVENT DATE: 2019
